FAERS Safety Report 8462446-4 (Version None)
Quarter: 2012Q2

REPORT INFORMATION
  Report Type: 
  Country: None (occurrence: None)
  Receive Date: 20120625
  Receipt Date: 20120615
  Transmission Date: 20120825
  Serious: No
  Sender: FDA-Public Use
  Company Number: CA-JNJFOC-20120609478

PATIENT
  Sex: Male
  Weight: 85 kg

DRUGS (2)
  1. REMICADE [Suspect]
     Indication: CROHN'S DISEASE
     Route: 042
  2. ANTIBIOTIC  NOS [Concomitant]
     Route: 065

REACTIONS (2)
  - EAR INFECTION FUNGAL [None]
  - MALAISE [None]
